FAERS Safety Report 12200236 (Version 1)
Quarter: 2016Q1

REPORT INFORMATION
  Report Type: Spontaneous
  Country: US (occurrence: US)
  Receive Date: 20160322
  Receipt Date: 20160322
  Transmission Date: 20160526
  Serious: No
  Sender: FDA-Public Use
  Company Number: US-SEPTODONT-201502446

PATIENT
  Age: 60 Year
  Sex: Male

DRUGS (2)
  1. LIDOCAINE HYDROCHLORIDE 2% WITH EPINEPHRINE 1:100,000 INJECTION [Suspect]
     Active Substance: EPINEPHRINE\LIDOCAINE HYDROCHLORIDE
     Indication: LOCAL ANAESTHESIA
     Dosage: 2 CARPULES ADMINISTERED USING 30GA SHORT NEEDLE VIA MANDIBULAR BLOCK + LOCA.
     Route: 004
     Dates: start: 20140522, end: 20140522
  2. SCOTT^S SELECT TOPICAL GEL 1OZ CHERRY [Concomitant]
     Indication: LOCAL ANAESTHESIA
     Route: 061
     Dates: start: 20140522

REACTIONS (5)
  - Sebaceous gland disorder [None]
  - Candida infection [Recovered/Resolved]
  - Product contamination physical [None]
  - Lip blister [None]
  - Procedural pain [Recovered/Resolved]

NARRATIVE: CASE EVENT DATE: 2014
